FAERS Safety Report 12428030 (Version 2)
Quarter: 2022Q3

REPORT INFORMATION
  Report Type: Spontaneous
  Country: JP (occurrence: JP)
  Receive Date: 20160602
  Receipt Date: 20220903
  Transmission Date: 20221027
  Serious: Yes (Other)
  Sender: FDA-Public Use
  Company Number: None

PATIENT
  Age: 22 Year
  Sex: Female

DRUGS (5)
  1. PREDNISOLONE [Suspect]
     Active Substance: PREDNISOLONE
     Indication: Systemic lupus erythematosus
     Dosage: UNK
     Route: 065
  2. PREDNISOLONE [Suspect]
     Active Substance: PREDNISOLONE
     Dosage: 30 MG, QD
     Route: 048
  3. TACROLIMUS [Suspect]
     Active Substance: TACROLIMUS
     Indication: Systemic lupus erythematosus
     Dosage: 2 MG, QD
     Route: 065
  4. METHYLPREDNISOLONE [Suspect]
     Active Substance: METHYLPREDNISOLONE
     Indication: Systemic lupus erythematosus
     Dosage: 1000 MG/DAY (PULSE THERAPY (1000 MG/DAY FOR 3 DAYS) CONDUCTED TWICE)
     Route: 065
  5. METHYLPREDNISOLONE [Suspect]
     Active Substance: METHYLPREDNISOLONE
     Dosage: 1000 MILLIGRAM/DAY (FOUR COURSES OF 1000 MG/DAY, 3 DAYS)
     Route: 065

REACTIONS (15)
  - Haemophagocytic lymphohistiocytosis [Recovered/Resolved]
  - Splenomegaly [Recovered/Resolved]
  - Bicytopenia [Recovered/Resolved]
  - Hypofibrinogenaemia [Recovered/Resolved]
  - Serum ferritin increased [Recovered/Resolved]
  - Disease recurrence [Unknown]
  - Arthralgia [Recovered/Resolved]
  - Anaemia [Recovered/Resolved]
  - Cystitis haemorrhagic [Recovered/Resolved]
  - Thrombocytopenia [Recovered/Resolved]
  - Infection reactivation [Recovered/Resolved]
  - Erythema [Unknown]
  - Pyrexia [Unknown]
  - BK virus infection [Recovered/Resolved]
  - Off label use [Unknown]
